FAERS Safety Report 19875845 (Version 1)
Quarter: 2021Q3

REPORT INFORMATION
  Report Type: Spontaneous
  Country: AT (occurrence: AT)
  Receive Date: 20210924
  Receipt Date: 20210924
  Transmission Date: 20211014
  Serious: Yes (Life-Threatening, Hospitalization, Other)
  Sender: FDA-Public Use
  Company Number: AT-SA-2021SA313425

PATIENT
  Age: 72 Year
  Sex: Male

DRUGS (17)
  1. INDERAL [Concomitant]
     Active Substance: PROPRANOLOL HYDROCHLORIDE
     Indication: HYPERTHYROIDISM
     Dosage: 5 MG, BID
     Route: 065
     Dates: start: 20190918, end: 20191018
  2. THIAMAZOLE [Suspect]
     Active Substance: METHIMAZOLE
     Dosage: 30 UNK
     Route: 048
     Dates: start: 20191001, end: 20191018
  3. PARACETAMOL [Suspect]
     Active Substance: ACETAMINOPHEN
     Indication: PYREXIA
     Route: 048
     Dates: start: 20191018, end: 20191018
  4. ENCORAFENIB [Suspect]
     Active Substance: ENCORAFENIB
     Indication: METASTATIC MALIGNANT MELANOMA
     Route: 048
     Dates: start: 20190607, end: 20190802
  5. AMLODIPINE [Concomitant]
     Active Substance: AMLODIPINE BESYLATE
     Dosage: AS NEEDED
     Route: 065
     Dates: start: 20190918
  6. BINIMETINIB [Suspect]
     Active Substance: BINIMETINIB
     Indication: METASTATIC MALIGNANT MELANOMA
     Dosage: 90 MG, QD
     Route: 048
     Dates: start: 20190607, end: 20190802
  7. MEKTOVI [Suspect]
     Active Substance: BINIMETINIB
     Dosage: 45 MG, BID (2/DAY)
     Route: 048
     Dates: start: 20191029
  8. NORVASC [Concomitant]
     Active Substance: AMLODIPINE BESYLATE
     Dosage: 5 MG, QD
     Route: 048
     Dates: start: 20190917, end: 20191018
  9. THIAMAZOLE [Suspect]
     Active Substance: METHIMAZOLE
     Indication: HYPERTHYROIDISM
     Dosage: 20 MG, QD (1/DAY)
     Route: 065
     Dates: start: 20190918, end: 20191008
  10. IPILIMUMAB [Suspect]
     Active Substance: IPILIMUMAB
     Indication: METASTATIC MALIGNANT MELANOMA
     Dosage: 202.8 MG EVERY 3 WEEKS
     Route: 042
     Dates: start: 20190819, end: 20190916
  11. ENCORAFENIB [Suspect]
     Active Substance: ENCORAFENIB
     Dosage: 450 MG, QD
     Route: 048
     Dates: start: 20191009, end: 20191019
  12. IVADAL [Suspect]
     Active Substance: ZOLPIDEM TARTRATE
     Indication: SLEEP DISORDER
     Dosage: 5 MG, QD
     Route: 048
     Dates: start: 20191018, end: 20191018
  13. BINIMETINIB [Suspect]
     Active Substance: BINIMETINIB
     Route: 048
     Dates: start: 20191009, end: 20191019
  14. NIVOLUMAB [Suspect]
     Active Substance: NIVOLUMAB
     Indication: METASTATIC MALIGNANT MELANOMA
     Dosage: 67.6 MG
     Route: 042
     Dates: start: 20190819, end: 20190916
  15. BRAFTOVI [Suspect]
     Active Substance: ENCORAFENIB
     Dosage: 450 MG, QD (1/DAY)
     Route: 048
     Dates: start: 20191029
  16. PANTOLOC [Concomitant]
     Active Substance: PANTOPRAZOLE SODIUM
     Dosage: 40 MG, PRN
     Route: 048
     Dates: start: 20190916, end: 20191018
  17. INDERAL [Concomitant]
     Active Substance: PROPRANOLOL HYDROCHLORIDE
     Dosage: 15 MG, QD (10 MG, .5 TAB TID)
     Route: 048
     Dates: start: 20191004, end: 20191018

REACTIONS (2)
  - Agranulocytosis [Recovered/Resolved]
  - Febrile neutropenia [Recovered/Resolved]
